FAERS Safety Report 7062022-4 (Version None)
Quarter: 2010Q4

REPORT INFORMATION
  Report Type: 
  Country: None (occurrence: None)
  Receive Date: 20101026
  Receipt Date: 20101020
  Transmission Date: 20110411
  Serious: Yes (Hospitalization)
  Sender: FDA-Public Use
  Company Number: A0799960A

PATIENT
  Age: 55 Year
  Sex: Male
  Weight: 135 kg

DRUGS (8)
  1. AVANDIA [Suspect]
     Indication: DIABETES MELLITUS
     Dosage: 8MG PER DAY
     Route: 048
     Dates: end: 20080701
  2. ABILIFY [Concomitant]
  3. ASPIRIN [Concomitant]
  4. METOPROLOL [Concomitant]
  5. LISINOPRIL [Concomitant]
  6. METFORMIN [Concomitant]
  7. HYDROCHLOROTHIAZIDE [Concomitant]
  8. NOVOLIN 70/30 [Concomitant]

REACTIONS (1)
  - CEREBROVASCULAR ACCIDENT [None]
